FAERS Safety Report 5528409-3 (Version None)
Quarter: 2007Q4

REPORT INFORMATION
  Report Type: 
  Country: None (occurrence: None)
  Receive Date: 20071123
  Receipt Date: 20071112
  Transmission Date: 20080405
  Serious: Yes (Hospitalization)
  Sender: FDA-Public Use
  Company Number: 2007-05067

PATIENT
  Age: 34 Year
  Sex: Female

DRUGS (2)
  1. TRELSTAR DEPOT [Suspect]
     Indication: INFERTILITY
     Dosage: 0.1 MG, DAILY DAY 5 TO DAY 12, SUBCUTANEOUS
     Route: 058
     Dates: start: 20000501, end: 20000501
  2. PUREGON(FOLLITROPIN BETA) [Suspect]
     Indication: INFERTILITY
     Dosage: 150 IU, DAILY DAY 5 TO DAY 12, SUBCUTANEOUS
     Route: 058
     Dates: start: 20000501, end: 20000501

REACTIONS (2)
  - BREAST CANCER STAGE III [None]
  - FIBROADENOMA [None]
